FAERS Safety Report 20492512 (Version 3)
Quarter: 2022Q4

REPORT INFORMATION
  Report Type: Spontaneous
  Country: FR (occurrence: FR)
  Receive Date: 20220219
  Receipt Date: 20221003
  Transmission Date: 20230112
  Serious: Yes (Death, Hospitalization, Other)
  Sender: FDA-Public Use
  Company Number: FR-GILEAD-2022-0568757

PATIENT
  Sex: Female
  Weight: 68 kg

DRUGS (5)
  1. METFORMIN [Suspect]
     Active Substance: METFORMIN HYDROCHLORIDE
     Indication: Diabetes mellitus
     Dosage: UNK
     Route: 065
     Dates: start: 2016, end: 20211124
  2. SACITUZUMAB GOVITECAN [Suspect]
     Active Substance: SACITUZUMAB GOVITECAN
     Indication: Triple negative breast cancer
     Dosage: 10 MILLIGRAM/KILOGRAM
     Route: 042
     Dates: start: 20211028
  3. SACITUZUMAB GOVITECAN [Suspect]
     Active Substance: SACITUZUMAB GOVITECAN
     Dosage: 10 MILLICURIE PER KILOGRAM
     Route: 042
     Dates: start: 20211103, end: 20211209
  4. SACITUZUMAB GOVITECAN [Suspect]
     Active Substance: SACITUZUMAB GOVITECAN
     Dosage: 7.5 MILLIGRAM/KILOGRAM (D1 D8)
     Route: 042
     Dates: start: 20211201, end: 20211209
  5. ACETAMINOPHEN [Concomitant]
     Active Substance: ACETAMINOPHEN
     Indication: Bone pain
     Dosage: UNK
     Route: 065
     Dates: start: 20211020

REACTIONS (5)
  - Disease progression [Fatal]
  - Neoplasm progression [Fatal]
  - Renal failure [Not Recovered/Not Resolved]
  - Asthenia [Recovered/Resolved]
  - Off label use [Recovered/Resolved]

NARRATIVE: CASE EVENT DATE: 20211103
